FAERS Safety Report 14017846 (Version 1)
Quarter: 2017Q3

REPORT INFORMATION
  Report Type: Spontaneous
  Country: US (occurrence: None)
  Receive Date: 20170927
  Receipt Date: 20170927
  Transmission Date: 20171128
  Serious: No
  Sender: FDA-Public Use
  Company Number: None

PATIENT
  Age: 50 Year
  Sex: Female
  Weight: 94.4 kg

DRUGS (2)
  1. HEPARIN 10,000 UNITS/10ML [Suspect]
     Active Substance: HEPARIN SODIUM
     Indication: CATHETERISATION CARDIAC
     Dosage: 30,000 UNITS 1 TIME IV
     Route: 042
     Dates: start: 20170918
  2. HEPARIN 10,000 UNITS/10ML [Suspect]
     Active Substance: HEPARIN SODIUM
     Indication: CATHETERISATION CARDIAC
     Dosage: 10,000 UNITS 1 TIME IV
     Route: 042
     Dates: start: 20170918

REACTIONS (1)
  - Drug effect incomplete [None]

NARRATIVE: CASE EVENT DATE: 20170918
